FAERS Safety Report 7312012-9 (Version None)
Quarter: 2011Q1

REPORT INFORMATION
  Report Type: 
  Country: None (occurrence: None)
  Receive Date: 20110224
  Receipt Date: 20110129
  Transmission Date: 20110831
  Serious: No
  Sender: FDA-Public Use
  Company Number: US-B.I. PHARMACEUTICALS,INC./RIDGEFIELD-2011-BP-03083BP

PATIENT
  Age: 72 Year
  Sex: Female

DRUGS (4)
  1. METAMUCIL-2 [Concomitant]
     Route: 048
  2. VITAMIN D [Concomitant]
     Route: 048
  3. SOTALOL HYDROCHLORIDE [Suspect]
     Indication: CARDIAC FLUTTER
     Dates: start: 20110125
  4. PRADAXA [Suspect]
     Indication: ATRIAL FIBRILLATION
     Dosage: 300 MG
     Route: 048
     Dates: start: 20110110

REACTIONS (4)
  - FATIGUE [None]
  - VAGINAL HAEMORRHAGE [None]
  - ABDOMINAL DISCOMFORT [None]
  - CARDIAC FLUTTER [None]
